FAERS Safety Report 7352155-7 (Version None)
Quarter: 2011Q1

REPORT INFORMATION
  Report Type: 
  Country: None (occurrence: None)
  Receive Date: 20110304
  Receipt Date: 20090720
  Transmission Date: 20110831
  Serious: Yes (Other)
  Sender: FDA-Public Use
  Company Number: UK-2009-00233

PATIENT
  Age: 74 Year
  Sex: Female

DRUGS (5)
  1. CEPHALEXIN [Concomitant]
  2. SIMVASTATIN [Suspect]
     Indication: BLOOD CHOLESTEROL INCREASED
     Dosage: 20 MG (20 MG,UNK), ORAL
     Route: 048
     Dates: end: 20090620
  3. ASPIRIN [Concomitant]
  4. CANDESARTAN [Concomitant]
  5. PARACETAMOL [Concomitant]

REACTIONS (2)
  - BLADDER CANCER [None]
  - HAEMATURIA [None]
